FAERS Safety Report 5740479-6 (Version None)
Quarter: 2008Q2

REPORT INFORMATION
  Report Type: 
  Country: None (occurrence: None)
  Receive Date: 20080516
  Receipt Date: 20080507
  Transmission Date: 20081010
  Serious: Yes (Hospitalization, Other)
  Sender: FDA-Public Use
  Company Number: DK-GILEAD-2008-0015913

PATIENT
  Age: 21 Year
  Sex: Male

DRUGS (4)
  1. TRUVADA [Suspect]
     Indication: HIV INFECTION
  2. VIRAMUNE [Suspect]
     Indication: HIV INFECTION
  3. VIRAMUNE [Suspect]
  4. STOCRIN [Suspect]
     Indication: HIV INFECTION

REACTIONS (1)
  - SYNCOPE [None]
